FAERS Safety Report 8333674-3 (Version None)
Quarter: 2012Q1

REPORT INFORMATION
  Report Type: 
  Country: None (occurrence: None)
  Receive Date: 20120329
  Receipt Date: 20100201
  Transmission Date: 20120608
  Serious: Yes (Disabling)
  Sender: FDA-Public Use
  Company Number: PHEH2009US14315

PATIENT
  Age: 69 Year
  Sex: Female
  Weight: 96.6 kg

DRUGS (7)
  1. PROMETHAZINE [Concomitant]
  2. ASPIRIN [Concomitant]
  3. LAMISIL [Suspect]
     Indication: FUNGAL INFECTION
     Dosage: 250, ^ONE TABLET ORAL QD^ (DAILY), ORAL
     Route: 048
     Dates: start: 20090819, end: 20091013
  4. NAPROSYN [Concomitant]
  5. FISH OIL (FISH OIL) [Concomitant]
  6. LISINOPRIL [Concomitant]
  7. NORVASC [Concomitant]

REACTIONS (4)
  - NAUSEA [None]
  - AGEUSIA [None]
  - WEIGHT DECREASED [None]
  - HYPOPHAGIA [None]
